FAERS Safety Report 8991997 (Version 2)
Quarter: 2013Q1

REPORT INFORMATION
  Report Type: Spontaneous
  Country: TW (occurrence: TW)
  Receive Date: 20121231
  Receipt Date: 20130304
  Transmission Date: 20140127
  Serious: Yes (Hospitalization, Other)
  Sender: FDA-Public Use
  Company Number: TW-ABBOTT-12P-153-1025804-00

PATIENT
  Age: 75 Year
  Sex: Female
  Weight: 53.7 kg

DRUGS (8)
  1. HUMIRA [Suspect]
     Indication: PSORIATIC ARTHROPATHY
     Route: 058
     Dates: start: 20121123, end: 20121221
  2. HYZAAR [Concomitant]
     Indication: HYPERTENSION
     Dosage: 1#
     Route: 048
  3. XYZAL [Concomitant]
     Indication: HYPERSENSITIVITY
     Dosage: 1#
     Route: 048
  4. NORVASC [Concomitant]
     Indication: HYPERTENSION
     Dosage: 1 # EVERY NIGHT
     Route: 048
  5. MEITIFEU [Concomitant]
     Indication: RHEUMATOID ARTHRITIS
     Dosage: 1#
     Route: 048
  6. AMARYL [Concomitant]
     Indication: DIABETES MELLITUS
     Dosage: 1#
     Route: 048
  7. GLUCOPHAGE [Concomitant]
     Indication: DIABETES MELLITUS
     Dosage: 1#
     Route: 048
  8. ARHEUMA [Concomitant]
     Indication: RHEUMATOID ARTHRITIS
     Dosage: 1#
     Route: 048

REACTIONS (3)
  - Pyrexia [Recovering/Resolving]
  - Fatigue [Recovering/Resolving]
  - Tuberculosis [Unknown]
